FAERS Safety Report 14926415 (Version 1)
Quarter: 2018Q2

REPORT INFORMATION
  Report Type: Spontaneous
  Country: DE (occurrence: DE)
  Receive Date: 20180523
  Receipt Date: 20180523
  Transmission Date: 20180711
  Serious: No
  Sender: FDA-Public Use
  Company Number: DE-LUPIN (EUROPE) LIMITED-2018-00221

PATIENT
  Age: 72 Year
  Sex: Male

DRUGS (3)
  1. ASPIRIN. [Concomitant]
     Active Substance: ASPIRIN
     Indication: PRODUCT USED FOR UNKNOWN INDICATION
     Dosage: UNK
     Route: 065
  2. QUETIAPIN-HORMOSAN 25 MG FILMTABLETTEN [Suspect]
     Active Substance: QUETIAPINE
     Indication: DEPRESSION
     Dosage: 25 MG, SINGLE
     Route: 048
     Dates: start: 20180110
  3. VENLAFAXINE [Concomitant]
     Active Substance: VENLAFAXINE HYDROCHLORIDE
     Indication: PRODUCT USED FOR UNKNOWN INDICATION
     Dosage: TAKING REGULARLY
     Route: 065

REACTIONS (2)
  - Dizziness [Recovered/Resolved]
  - Somnolence [Recovered/Resolved]

NARRATIVE: CASE EVENT DATE: 20180110
